FAERS Safety Report 9485455 (Version 2)
Quarter: 2013Q3

REPORT INFORMATION
  Report Type: Spontaneous
  Country: HU (occurrence: HU)
  Receive Date: 20130829
  Receipt Date: 20130829
  Transmission Date: 20140515
  Serious: Yes (Hospitalization)
  Sender: FDA-Public Use
  Company Number: HU-BIOGENIDEC-2013BI074529

PATIENT
  Sex: Male

DRUGS (6)
  1. TYSABRI [Suspect]
     Indication: MULTIPLE SCLEROSIS
     Route: 042
     Dates: start: 20130404, end: 20130801
  2. FAMPYRA [Concomitant]
     Indication: PRODUCT USED FOR UNKNOWN INDICATION
     Dates: start: 20130626, end: 201307
  3. DETRALEX [Concomitant]
  4. ATORVASTATIN [Concomitant]
  5. SIRDALUD [Concomitant]
  6. AURORIX [Concomitant]

REACTIONS (1)
  - Motor neurone disease [Not Recovered/Not Resolved]
